FAERS Safety Report 23340606 (Version 2)
Quarter: 2024Q3

REPORT INFORMATION
  Report Type: Spontaneous
  Country: BR (occurrence: BR)
  Receive Date: 20231227
  Receipt Date: 20240701
  Transmission Date: 20241016
  Serious: Yes (Death, Hospitalization, Other)
  Sender: NOVO NORDISK
  Company Number: BR-NOVOPROD-1153350

PATIENT
  Age: 839 Month
  Sex: Male

DRUGS (2)
  1. NOVOLIN R [Suspect]
     Active Substance: INSULIN HUMAN
     Indication: Diabetes mellitus
     Dosage: UNK
  2. NOVOLIN N [Suspect]
     Active Substance: INSULIN HUMAN
     Indication: Diabetes mellitus
     Dosage: UNK

REACTIONS (6)
  - Dengue fever [Fatal]
  - Illness [Fatal]
  - Hypoaesthesia [Unknown]
  - Hypoglycaemia [Unknown]
  - Cerebrovascular accident [Unknown]
  - COVID-19 [Unknown]
